FAERS Safety Report 15764578 (Version 1)
Quarter: 2018Q4

REPORT INFORMATION
  Report Type: Spontaneous
  Country: IN (occurrence: IN)
  Receive Date: 20181227
  Receipt Date: 20181227
  Transmission Date: 20190205
  Serious: Yes (Hospitalization)
  Sender: FDA-Public Use
  Company Number: IN-NOVITIUM PHARMA LLC-2018-IN-000095

PATIENT
  Age: 4 Year
  Sex: Female

DRUGS (1)
  1. DAPSONE. [Suspect]
     Active Substance: DAPSONE
     Indication: PRODUCT USED FOR UNKNOWN INDICATION
     Dosage: 8 TABLETS 100 MG PER TABLET
     Route: 065

REACTIONS (3)
  - Accidental overdose [Unknown]
  - Haemolytic anaemia [Unknown]
  - Methaemoglobinaemia [Recovering/Resolving]
